FAERS Safety Report 13739642 (Version 1)
Quarter: 2017Q3

REPORT INFORMATION
  Report Type: Spontaneous
  Country: JP (occurrence: JP)
  Receive Date: 20170711
  Receipt Date: 20170711
  Transmission Date: 20171127
  Serious: Yes (Hospitalization)
  Sender: FDA-Public Use
  Company Number: PHHY2009JP16580

PATIENT
  Age: 14 Year
  Sex: Male

DRUGS (8)
  1. MIKELAN LA 2% (NVO) [Suspect]
     Active Substance: CARTEOLOL HYDROCHLORIDE
     Indication: GLAUCOMA
     Dosage: 2 GTT OU, BID
     Dates: start: 20071220
  2. PAPILOCK 0.1% [Concomitant]
     Active Substance: CYCLOSPORINE
     Dosage: UNK
     Route: 047
     Dates: start: 200709, end: 20081023
  3. VIGAMOX [Concomitant]
     Active Substance: MOXIFLOXACIN HYDROCHLORIDE
     Dosage: UNK
     Route: 047
     Dates: start: 20080814, end: 20080904
  4. TALYMUS [Concomitant]
     Active Substance: TACROLIMUS
     Indication: CONJUNCTIVITIS ALLERGIC
     Dosage: 1 GTT, BID
     Route: 047
     Dates: start: 20081024, end: 20081211
  5. AZOPT [Concomitant]
     Active Substance: BRINZOLAMIDE
     Dosage: UNK
     Route: 047
     Dates: start: 20071010, end: 20081211
  6. XALATAN [Concomitant]
     Active Substance: LATANOPROST
     Dosage: UNK
     Route: 047
     Dates: start: 20071010
  7. DIAMOX SEQUELS [Concomitant]
     Active Substance: ACETAZOLAMIDE
     Dosage: UNK
     Dates: start: 20071210, end: 20081211
  8. HYALEIN MINI [Concomitant]
     Dosage: UNK
     Route: 047
     Dates: start: 20080221, end: 20081211

REACTIONS (2)
  - Intraocular pressure increased [Not Recovered/Not Resolved]
  - Overdose [Not Recovered/Not Resolved]

NARRATIVE: CASE EVENT DATE: 20081211
